FAERS Safety Report 8508816-7 (Version None)
Quarter: 2012Q3

REPORT INFORMATION
  Report Type: 
  Country: None (occurrence: None)
  Receive Date: 20120713
  Receipt Date: 20120706
  Transmission Date: 20120928
  Serious: Yes (Death)
  Sender: FDA-Public Use
  Company Number: NO-ROXANE LABORATORIES, INC.-2012-RO-01525RO

PATIENT
  Age: 45 Year
  Sex: Male

DRUGS (2)
  1. IBUPROFEN [Suspect]
  2. CODEINE SULFATE [Suspect]

REACTIONS (1)
  - DEATH [None]
